FAERS Safety Report 5932991-1 (Version None)
Quarter: 2008Q4

REPORT INFORMATION
  Report Type: 
  Country: None (occurrence: None)
  Receive Date: 20081027
  Receipt Date: 20081027
  Transmission Date: 20090506
  Serious: Yes (Other)
  Sender: FDA-Public Use
  Company Number: None

PATIENT
  Sex: Male
  Weight: 19.5047 kg

DRUGS (1)
  1. SINGULAIR [Suspect]
     Indication: ASTHMA
     Dosage: 1 TAB 1X DAILY PO
     Route: 048
     Dates: start: 20080905, end: 20081015

REACTIONS (7)
  - ABNORMAL BEHAVIOUR [None]
  - EMOTIONAL DISORDER [None]
  - FACIAL PAIN [None]
  - FEAR [None]
  - OBSESSIVE-COMPULSIVE DISORDER [None]
  - OPPOSITIONAL DEFIANT DISORDER [None]
  - TIC [None]
